FAERS Safety Report 5381330-6 (Version None)
Quarter: 2007Q2

REPORT INFORMATION
  Report Type: 
  Country: None (occurrence: None)
  Receive Date: 20070629
  Receipt Date: 20061012
  Transmission Date: 20071010
  Serious: Yes (Other)
  Sender: FDA-Public Use
  Company Number: 2006125919

PATIENT
  Age: 66 Year
  Sex: Female
  Weight: 63.5036 kg

DRUGS (3)
  1. ZOLOFT [Suspect]
     Indication: STRESS
     Dosage: 25 MG (25 MG, 1 IN 1 D)
     Dates: start: 20060929
  2. HYDROCHLOROTHIAZIDE [Concomitant]
  3. PRILOSEC [Concomitant]

REACTIONS (6)
  - CHEST PAIN [None]
  - EMOTIONAL DISORDER [None]
  - ERUCTATION [None]
  - EUPHORIC MOOD [None]
  - HYPERTENSION [None]
  - NAUSEA [None]
